FAERS Safety Report 9762858 (Version 1)
Quarter: 2013Q4

REPORT INFORMATION
  Report Type: Spontaneous
  Country: US (occurrence: US)
  Receive Date: 20131216
  Receipt Date: 20131216
  Transmission Date: 20140711
  Serious: No
  Sender: FDA-Public Use
  Company Number: US-009507513-1312USA004939

PATIENT
  Age: 54 Year
  Sex: Male

DRUGS (2)
  1. PROVENTIL [Suspect]
     Dosage: UNK, PRN
     Route: 055
  2. VENTOLIN (ALBUTEROL SULFATE) [Concomitant]

REACTIONS (3)
  - Influenza [Unknown]
  - Product quality issue [Unknown]
  - Drug ineffective [Unknown]
